FAERS Safety Report 5807683-X (Version None)
Quarter: 2008Q3

REPORT INFORMATION
  Report Type: 
  Country: None (occurrence: None)
  Receive Date: 20080711
  Receipt Date: 20080702
  Transmission Date: 20090109
  Serious: Yes (Death, Life-Threatening, Hospitalization)
  Sender: FDA-Public Use
  Company Number: JP-ABBOTT-08P-087-0438538-00

PATIENT
  Age: 80 Year
  Sex: Male

DRUGS (7)
  1. LEUPLIN SR FOR INJECTION 11.25 MG [Suspect]
     Indication: PROSTATE CANCER STAGE II
     Route: 058
     Dates: start: 20061219, end: 20071204
  2. LANSOPRAZOLE [Concomitant]
     Indication: REFLUX OESOPHAGITIS
     Route: 048
     Dates: end: 20070410
  3. BICALUTAMIDE [Concomitant]
     Indication: PROSTATE CANCER STAGE II
     Route: 048
     Dates: start: 20061205, end: 20080201
  4. TAMSULOSIN HCL [Concomitant]
     Indication: BENIGN PROSTATIC HYPERPLASIA
     Route: 048
     Dates: start: 20061110, end: 20080201
  5. REBAMIPIDE [Concomitant]
     Indication: REFLUX OESOPHAGITIS
     Route: 048
     Dates: end: 20070410
  6. MOSAPRIDE CITRATE [Concomitant]
     Indication: GASTRITIS
     Route: 048
     Dates: end: 20070410
  7. MARZULENE S [Concomitant]
     Indication: GASTRITIS
     Route: 048
     Dates: start: 20070410, end: 20080201

REACTIONS (5)
  - ADENOSQUAMOUS CELL LUNG CANCER [None]
  - ANOREXIA [None]
  - BACK PAIN [None]
  - CHEST PAIN [None]
  - NAUSEA [None]
